FAERS Safety Report 7506600-4 (Version None)
Quarter: 2011Q2

REPORT INFORMATION
  Report Type: 
  Country: None (occurrence: None)
  Receive Date: 20110526
  Receipt Date: 20110517
  Transmission Date: 20111010
  Serious: Yes (Disabling)
  Sender: FDA-Public Use
  Company Number: GB-ASTRAZENECA-2011SE29790

PATIENT
  Age: 70 Year
  Sex: Male

DRUGS (12)
  1. ATENOLOL [Concomitant]
     Indication: HYPERTENSION
     Route: 048
  2. FUROSEMIDE [Concomitant]
     Route: 048
  3. PHOS-EX [Concomitant]
     Route: 048
  4. CANDESARTAN CILEXETIL [Concomitant]
     Indication: HYPERTENSION
     Route: 048
  5. AMLODIPINE [Concomitant]
     Indication: HYPERTENSION
     Route: 048
  6. SIMVASTATIN [Concomitant]
     Route: 048
  7. OMEPRAZOLE [Suspect]
     Route: 048
  8. FEBUXOSTAT [Suspect]
     Indication: GOUT
     Route: 048
     Dates: start: 20110201, end: 20110309
  9. DARBEPOETIN ALFA [Concomitant]
  10. DOXAZOSIN MESYLATE [Concomitant]
     Indication: HYPERTENSION
     Route: 048
  11. FERROUS SULFATE TAB [Concomitant]
     Route: 048
  12. ALFACALCIDOL [Concomitant]
     Indication: PROPHYLAXIS
     Route: 048

REACTIONS (1)
  - RENAL FAILURE [None]
